FAERS Safety Report 9538536 (Version 1)
Quarter: 2013Q3

REPORT INFORMATION
  Report Type: Spontaneous
  Country: US (occurrence: None)
  Receive Date: 20130918
  Receipt Date: 20130918
  Transmission Date: 20140515
  Serious: No
  Sender: FDA-Public Use
  Company Number: None

PATIENT
  Age: 78 Year
  Sex: Female

DRUGS (8)
  1. AMBIEN [Suspect]
     Indication: INSOMNIA
     Dosage: 1 AT BEDTIME
     Route: 048
     Dates: start: 20130215, end: 20130215
  2. THYROID [Concomitant]
  3. WILCHAB [Concomitant]
  4. VIT E AND CALCIUM [Concomitant]
  5. CENTRUM MULTI-VIT [Concomitant]
  6. CALCIUM [Concomitant]
  7. VIT D [Concomitant]
  8. ADVIL [Concomitant]

REACTIONS (4)
  - Fall [None]
  - Haemorrhage [None]
  - Facial bones fracture [None]
  - Face injury [None]
